FAERS Safety Report 23943393 (Version 2)
Quarter: 2024Q3

REPORT INFORMATION
  Report Type: Report from Study
  Country: US (occurrence: US)
  Receive Date: 20240605
  Receipt Date: 20240702
  Transmission Date: 20241017
  Serious: Yes (Hospitalization)
  Sender: ABBVIE
  Company Number: US-ABBVIE-5710304

PATIENT
  Sex: Female

DRUGS (2)
  1. HUMIRA [Suspect]
     Active Substance: ADALIMUMAB
     Indication: Rheumatoid arthritis
     Dosage: FORM STRENGTH: 40 MILLIGRAM
     Route: 058
     Dates: start: 20231202
  2. HUMIRA [Suspect]
     Active Substance: ADALIMUMAB

REACTIONS (13)
  - Vital capacity abnormal [Unknown]
  - Lymphoedema [Recovering/Resolving]
  - Cough [Recovered/Resolved with Sequelae]
  - Weight decreased [Recovering/Resolving]
  - Pain [Not Recovered/Not Resolved]
  - Viral infection [Recovered/Resolved with Sequelae]
  - Thrombosis [Recovering/Resolving]
  - Arthropod bite [Recovered/Resolved]
  - Fatigue [Recovered/Resolved with Sequelae]
  - Confusional state [Recovering/Resolving]
  - Chronic obstructive pulmonary disease [Recovering/Resolving]
  - Breast cellulitis [Not Recovered/Not Resolved]
  - Breast swelling [Unknown]
